FAERS Safety Report 14426232 (Version 1)
Quarter: 2018Q1

REPORT INFORMATION
  Report Type: Spontaneous
  Country: US (occurrence: US)
  Receive Date: 20180123
  Receipt Date: 20180123
  Transmission Date: 20180509
  Serious: No
  Sender: FDA-Public Use
  Company Number: US-ROCHE-2005557

PATIENT
  Sex: Female

DRUGS (5)
  1. AMPYRA [Concomitant]
     Active Substance: DALFAMPRIDINE
     Indication: MULTIPLE SCLEROSIS
     Dosage: ER 1 TABLET TWICE A DAY
     Route: 048
     Dates: start: 20101206
  2. ZANAFLEX [Concomitant]
     Active Substance: TIZANIDINE HYDROCHLORIDE
     Indication: PRODUCT USED FOR UNKNOWN INDICATION
     Dosage: 1-2 TABLETS AT BED TIME AS NEEDED
     Route: 048
     Dates: start: 20130925
  3. OCREVUS [Suspect]
     Active Substance: OCRELIZUMAB
     Indication: PRODUCT USED FOR UNKNOWN INDICATION
     Route: 042
  4. HORIZANT [Concomitant]
     Active Substance: GABAPENTIN ENACARBIL
     Indication: PRODUCT USED FOR UNKNOWN INDICATION
     Dosage: ER 1 TABLET THREE TIMES A DAY.
     Route: 048
     Dates: start: 20161007
  5. ELIQUIS [Concomitant]
     Active Substance: APIXABAN
     Indication: PRODUCT USED FOR UNKNOWN INDICATION
     Route: 048
     Dates: start: 20170105

REACTIONS (6)
  - Headache [Unknown]
  - Fatigue [Unknown]
  - Asthenia [Unknown]
  - Muscular weakness [Unknown]
  - Flushing [Not Recovered/Not Resolved]
  - Back pain [Unknown]
